FAERS Safety Report 5406272-9 (Version None)
Quarter: 2007Q3

REPORT INFORMATION
  Report Type: 
  Country: None (occurrence: None)
  Receive Date: 20070806
  Receipt Date: 20070801
  Transmission Date: 20080115
  Serious: Yes (Death, Life-Threatening, Hospitalization)
  Sender: FDA-Public Use
  Company Number: FR-JNJFOC-20070800035

PATIENT
  Age: 84 Year
  Sex: Male

DRUGS (4)
  1. OFLOCET [Suspect]
     Indication: DRUG USE FOR UNKNOWN INDICATION
     Route: 065
  2. FLAGYL [Interacting]
     Indication: DRUG USE FOR UNKNOWN INDICATION
     Route: 065
  3. PREVISCAN [Interacting]
     Indication: ARRHYTHMIA
     Route: 048
  4. ERYTHRPOIETIN [Concomitant]
     Indication: RENAL FAILURE CHRONIC
     Route: 065

REACTIONS (4)
  - CARDIAC FAILURE [None]
  - DIVERTICULAR PERFORATION [None]
  - DRUG INTERACTION [None]
  - RENAL FAILURE [None]
